FAERS Safety Report 9254703 (Version 2)
Quarter: 2013Q2

REPORT INFORMATION
  Report Type: Spontaneous
  Country: US (occurrence: US)
  Receive Date: 20130424
  Receipt Date: 20130503
  Transmission Date: 20140414
  Serious: Yes (Other)
  Sender: FDA-Public Use
  Company Number: US-RB-053178-13

PATIENT
  Age: 4 Year
  Sex: Female

DRUGS (1)
  1. DELSYM ADULT GRAPE COUGH SYRUP [Suspect]
     Indication: COUGH
     Dosage: 5ML DOSE ON EVENING OF 13/APR/2013, 5ML DOSE ON MORNING OF 14/APR/2013
     Dates: start: 20130413

REACTIONS (4)
  - Hallucination [Recovered/Resolved]
  - Abnormal behaviour [Unknown]
  - Insomnia [Unknown]
  - Overdose [Recovered/Resolved]
